FAERS Safety Report 21966247 (Version 1)
Quarter: 2023Q1

REPORT INFORMATION
  Report Type: Spontaneous
  Country: DE (occurrence: DE)
  Receive Date: 20230208
  Receipt Date: 20230208
  Transmission Date: 20230418
  Serious: No
  Sender: FDA-Public Use
  Company Number: None

PATIENT
  Age: 63 Year
  Sex: Female

DRUGS (15)
  1. EZETIMIBE [Suspect]
     Active Substance: EZETIMIBE
     Indication: Hypercholesterolaemia
     Dosage: 10 MILLIGRAM, QD (EVERY 1 DAY)
     Route: 048
     Dates: start: 202108, end: 202109
  2. EZETIMIBE [Suspect]
     Active Substance: EZETIMIBE
     Indication: Cerebral artery occlusion
  3. COLESEVELAM HYDROCHLORIDE [Suspect]
     Active Substance: COLESEVELAM HYDROCHLORIDE
     Indication: Hypercholesterolaemia
     Dosage: 625 MILLIGRAM, QD (EVERY 1 DAY)
     Route: 048
     Dates: start: 202111, end: 202112
  4. COLESEVELAM HYDROCHLORIDE [Suspect]
     Active Substance: COLESEVELAM HYDROCHLORIDE
     Indication: Cerebral artery occlusion
  5. ATORVASTATIN CALCIUM [Suspect]
     Active Substance: ATORVASTATIN CALCIUM
     Indication: Hypercholesterolaemia
     Dosage: 5 MILLIGRAM, QD (EVERY 1 DAY)
     Route: 048
     Dates: start: 2021, end: 2021
  6. ATORVASTATIN CALCIUM [Suspect]
     Active Substance: ATORVASTATIN CALCIUM
     Indication: Cerebral artery occlusion
  7. ROSUVASTATIN [Suspect]
     Active Substance: ROSUVASTATIN
     Indication: Cerebral artery occlusion
     Dosage: 5 MILLIGRAM, QD, (EVERY 1 DAY)
     Route: 048
     Dates: start: 2021, end: 2021
  8. ROSUVASTATIN [Suspect]
     Active Substance: ROSUVASTATIN
     Indication: Hypercholesterolaemia
  9. BEMPEDOIC ACID [Suspect]
     Active Substance: BEMPEDOIC ACID
     Indication: Cerebral artery occlusion
     Dosage: 180 MILLIGRAM, QD (EVERY 1 DAY)
     Route: 048
     Dates: start: 202109, end: 202110
  10. BEMPEDOIC ACID [Suspect]
     Active Substance: BEMPEDOIC ACID
     Indication: Hypercholesterolaemia
  11. AMLODIPINE BESYLATE [Concomitant]
     Active Substance: AMLODIPINE BESYLATE
     Indication: Hypertension
     Dosage: 5 MILLIGRAM, QD, (EVERY 1 DAY)
     Route: 065
  12. ASPIRIN [Concomitant]
     Active Substance: ASPIRIN
     Indication: Product used for unknown indication
     Dosage: 100 MILLIGRAM, QD, (EVERY 1 DAY)
     Route: 065
  13. LEVOTHYROXINE SODIUM [Concomitant]
     Active Substance: LEVOTHYROXINE SODIUM
     Indication: Product used for unknown indication
     Dosage: 100 MICROGRAM, QD, ( EVERY 1 DAY )
     Route: 065
  14. PANTOPRAZOLE SODIUM [Concomitant]
     Active Substance: PANTOPRAZOLE SODIUM
     Indication: Product used for unknown indication
     Dosage: 20 MILLIGRAM, QD,  (EVERY 1 DAY)
     Route: 065
  15. RAMIPRIL [Concomitant]
     Active Substance: RAMIPRIL
     Indication: Hypertension
     Dosage: 5 MILLIGRAM, BID, ( EVERY 12 HOUR)
     Route: 065

REACTIONS (4)
  - Arthralgia [Recovered/Resolved]
  - Diarrhoea [Recovered/Resolved]
  - Muscle spasms [Recovered/Resolved]
  - Myalgia [Recovered/Resolved]

NARRATIVE: CASE EVENT DATE: 20210101
